FAERS Safety Report 19881521 (Version 1)
Quarter: 2021Q3

REPORT INFORMATION
  Report Type: Spontaneous
  Country: US (occurrence: US)
  Receive Date: 20210924
  Receipt Date: 20210924
  Transmission Date: 20211014
  Serious: Yes (Other)
  Sender: FDA-Public Use
  Company Number: US-TEVA-2021-US-1956898

PATIENT
  Sex: Male

DRUGS (1)
  1. AJOVY [Suspect]
     Active Substance: FREMANEZUMAB-VFRM
     Dosage: DOSAGE: 1.5
     Route: 065
     Dates: start: 20210915

REACTIONS (3)
  - Nervousness [Unknown]
  - Panic attack [Unknown]
  - Seizure [Unknown]
